FAERS Safety Report 11201579 (Version 1)
Quarter: 2015Q2

REPORT INFORMATION
  Report Type: Spontaneous
  Country: US (occurrence: None)
  Receive Date: 20150617
  Receipt Date: 20150617
  Transmission Date: 20150821
  Serious: Yes (Hospitalization, Other)
  Sender: FDA-Public Use
  Company Number: ADR-2015-01142

PATIENT
  Age: 19 Year
  Sex: Female

DRUGS (3)
  1. BACLOFEN INTRATHECAL [Suspect]
     Active Substance: BACLOFEN
     Indication: MUSCLE SPASTICITY
  2. BACTRIM [Suspect]
     Active Substance: SULFAMETHOXAZOLE\TRIMETHOPRIM
  3. MEDROL [Suspect]
     Active Substance: METHYLPREDNISOLONE

REACTIONS (29)
  - Polydipsia [None]
  - Infection [None]
  - Nerve compression [None]
  - Cerebrospinal fluid leakage [None]
  - Urticaria [None]
  - Chest pain [None]
  - Retching [None]
  - Hallucinations, mixed [None]
  - Poor quality sleep [None]
  - Anxiety [None]
  - Nausea [None]
  - Choking [None]
  - White blood cell count increased [None]
  - Hyperaesthesia [None]
  - Pruritus [None]
  - Dizziness [None]
  - Dehydration [None]
  - Post procedural complication [None]
  - Headache [None]
  - Tremor [None]
  - Medical device complication [None]
  - Refusal of treatment by patient [None]
  - Tongue biting [None]
  - Speech disorder [None]
  - Paraesthesia [None]
  - Neck pain [None]
  - Tardive dyskinesia [None]
  - Pain in extremity [None]
  - Screaming [None]
